FAERS Safety Report 6155642-2 (Version None)
Quarter: 2009Q2

REPORT INFORMATION
  Report Type: 
  Country: None (occurrence: None)
  Receive Date: 20090415
  Receipt Date: 20090407
  Transmission Date: 20091009
  Serious: Yes (Hospitalization)
  Sender: FDA-Public Use
  Company Number: FR-ABBOTT-09P-056-0567092-00

PATIENT
  Sex: Male

DRUGS (5)
  1. DEPAKOTE [Suspect]
     Indication: AFFECTIVE DISORDER
     Route: 048
     Dates: start: 20090110, end: 20090210
  2. PIPORTIL [Suspect]
     Indication: AFFECTIVE DISORDER
     Route: 048
     Dates: start: 20090110, end: 20090210
  3. TERCIAN [Suspect]
     Indication: DELIRIUM
     Route: 048
     Dates: start: 20090210, end: 20090216
  4. ARIPIPRAZOLE [Suspect]
     Indication: DELIRIUM
     Dosage: 20 MG FIRST DAY, THEN 30 MG DAILY
     Route: 048
     Dates: start: 20090114, end: 20090216
  5. HALOPERIDOL [Suspect]
     Indication: DELIRIUM
     Route: 048
     Dates: start: 20090113, end: 20090210

REACTIONS (7)
  - BLOOD CREATINE PHOSPHOKINASE INCREASED [None]
  - GAIT DISTURBANCE [None]
  - HEPATOCELLULAR INJURY [None]
  - HYPERTONIA [None]
  - LEUKOCYTOSIS [None]
  - NEUROLEPTIC MALIGNANT SYNDROME [None]
  - PYREXIA [None]
